FAERS Safety Report 17487378 (Version 1)
Quarter: 2020Q1

REPORT INFORMATION
  Report Type: Report from Study
  Country: US (occurrence: US)
  Receive Date: 20200303
  Receipt Date: 20200303
  Transmission Date: 20200409
  Serious: Yes (Other)
  Sender: FDA-Public Use
  Company Number: US-ASTRAZENECA-2020SE28056

PATIENT
  Sex: Female

DRUGS (20)
  1. OMEGA-3 ACIDS [Concomitant]
     Active Substance: OMEGA-3 FATTY ACIDS
     Route: 065
  2. SPIRIVA RESP AER [Concomitant]
     Route: 055
  3. BUSPIRONE HC [Concomitant]
     Dosage: UNKNOWN
     Route: 065
  4. FEOFIBRATE [Concomitant]
     Route: 065
  5. VENTOLINE HFA [Concomitant]
     Dosage: 108
     Route: 065
  6. XARELTO [Concomitant]
     Active Substance: RIVAROXABAN
     Route: 065
  7. CALCIUM [Concomitant]
     Active Substance: CALCIUM
     Route: 065
  8. CITALOPRAM H [Concomitant]
     Route: 065
  9. MONTELUKAST [Concomitant]
     Active Substance: MONTELUKAST SODIUM
     Route: 065
  10. FASENRA [Suspect]
     Active Substance: BENRALIZUMAB
     Indication: ASTHMA
     Route: 058
  11. SEROQUEL [Suspect]
     Active Substance: QUETIAPINE FUMARATE
     Dosage: UNKNOWN
     Route: 048
  12. COMPLEX B-50 TBC [Concomitant]
     Route: 065
  13. ALLEGRA ALLE [Concomitant]
     Route: 065
  14. ARNIC MONTA [Concomitant]
     Route: 065
  15. DHEA [Concomitant]
     Active Substance: PRASTERONE
     Route: 065
  16. IPRATROPIUM [Concomitant]
     Active Substance: IPRATROPIUM
     Route: 065
  17. CITRACAL PLU [Concomitant]
     Route: 065
  18. RHEUMATE [Concomitant]
     Active Substance: LEVOMEFOLIC ACID\METHYLCOBALAMIN\TURMERIC
     Dosage: UNKNOWN
     Route: 065
  19. ALBUTEROL. [Concomitant]
     Active Substance: ALBUTEROL
     Route: 065
  20. HYDROCHLOROT [Concomitant]
     Active Substance: HYDROCHLOROTHIAZIDE
     Route: 065

REACTIONS (4)
  - Drug hypersensitivity [Recovered/Resolved]
  - Dyspnoea [Recovered/Resolved]
  - Atrial fibrillation [Recovered/Resolved]
  - Cough [Recovered/Resolved]
